FAERS Safety Report 21387140 (Version 1)
Quarter: 2022Q3

REPORT INFORMATION
  Report Type: Spontaneous
  Country: US (occurrence: None)
  Receive Date: 20220927
  Receipt Date: 20220927
  Transmission Date: 20221026
  Serious: Yes (Hospitalization)
  Sender: FDA-Public Use
  Company Number: None

PATIENT
  Age: 30 Year
  Sex: Male
  Weight: 87.75 kg

DRUGS (1)
  1. CITROMA [Suspect]
     Active Substance: MAGNESIUM CITRATE
     Indication: Constipation
     Dosage: OTHER QUANTITY : 4 OUNCE(S);?FREQUENCY : DAILY;?
     Route: 048
     Dates: start: 20220904, end: 20220914

REACTIONS (5)
  - Abdominal pain lower [None]
  - Gastrooesophageal reflux disease [None]
  - Gastrointestinal disorder [None]
  - Recalled product administered [None]
  - Gait disturbance [None]

NARRATIVE: CASE EVENT DATE: 20220904
